FAERS Safety Report 4889437-4 (Version None)
Quarter: 2006Q1

REPORT INFORMATION
  Report Type: 
  Country: None (occurrence: None)
  Receive Date: 20060120
  Receipt Date: 20060111
  Transmission Date: 20060701
  Serious: Yes (Other)
  Sender: FDA-Public Use
  Company Number: 2006007700

PATIENT
  Age: 66 Year
  Sex: Female
  Weight: 62.5964 kg

DRUGS (5)
  1. NEURONTIN [Suspect]
     Indication: NEUROPATHY
     Dosage: 200 MG (100 MG, 2 IN 1 D)
     Dates: start: 20041101, end: 20050101
  2. LEVOTHROID [Concomitant]
  3. ELAVIL [Concomitant]
  4. ATARAX [Concomitant]
  5. LUNESTA [Concomitant]

REACTIONS (7)
  - AGNOSIA [None]
  - COGNITIVE DISORDER [None]
  - DRUG INEFFECTIVE [None]
  - FEELING ABNORMAL [None]
  - MEMORY IMPAIRMENT [None]
  - SPINAL FUSION SURGERY [None]
  - WEIGHT INCREASED [None]
